FAERS Safety Report 7062999-7 (Version None)
Quarter: 2010Q4

REPORT INFORMATION
  Report Type: 
  Country: None (occurrence: None)
  Receive Date: 20101026
  Receipt Date: 20100322
  Transmission Date: 20110411
  Serious: No
  Sender: FDA-Public Use
  Company Number: US-PFIZER INC-2010036928

PATIENT
  Sex: Male

DRUGS (6)
  1. LIPITOR [Suspect]
     Dosage: UNK
     Route: 065
  2. NIASPAN [Suspect]
     Indication: HYPERCHOLESTEROLAEMIA
     Dosage: 500 MG, AT BEDTIME
     Route: 048
     Dates: start: 20090101
  3. METFORMIN [Concomitant]
     Dosage: 1000 MG, 2X/DAY
     Route: 048
  4. ACETYLSALICYLIC ACID [Concomitant]
     Dosage: 162 MG, AT BEDTIME
     Route: 048
  5. ATORVASTATIN CALCIUM [Concomitant]
     Dosage: UNK
  6. SIMVASTATIN [Concomitant]

REACTIONS (1)
  - ALOPECIA [None]
